FAERS Safety Report 15600455 (Version 1)
Quarter: 2018Q4

REPORT INFORMATION
  Report Type: Spontaneous
  Country: GR (occurrence: GR)
  Receive Date: 20181109
  Receipt Date: 20181109
  Transmission Date: 20190205
  Serious: Yes (Life-Threatening)
  Sender: FDA-Public Use
  Company Number: GR-TEVA-2018-GR-973416

PATIENT
  Age: 70 Year
  Sex: Female
  Weight: 72 kg

DRUGS (6)
  1. ATORVASTATIN 40 MG [Suspect]
     Active Substance: ATORVASTATIN
     Dates: start: 2014, end: 2015
  2. OLARTAN 20 MG [Concomitant]
     Active Substance: OLMESARTAN MEDOXOMIL
     Dosage: ON GOING
     Dates: start: 2017
  3. SIMVASTATIN 40 MG [Suspect]
     Active Substance: SIMVASTATIN
     Dates: start: 2015, end: 2017
  4. SALOSPIR 100 MG [Concomitant]
     Dosage: ON GOING
     Dates: start: 2017
  5. NORVASC [Concomitant]
     Active Substance: AMLODIPINE BESYLATE
     Dates: start: 2014, end: 2015
  6. EXFORGE 5 MG /160 MG [Concomitant]
     Dates: start: 2015, end: 2017

REACTIONS (3)
  - Dizziness [Unknown]
  - Myalgia [Unknown]
  - Asthenia [Unknown]

NARRATIVE: CASE EVENT DATE: 2016
